FAERS Safety Report 5869507-4 (Version None)
Quarter: 2008Q3

REPORT INFORMATION
  Report Type: 
  Country: None (occurrence: None)
  Receive Date: 20080904
  Receipt Date: 20080825
  Transmission Date: 20090109
  Serious: Yes (Other)
  Sender: FDA-Public Use
  Company Number: BR-RANBAXY-2008R5-17522

PATIENT

DRUGS (1)
  1. ACYCLOVIR [Suspect]
     Indication: GENITAL HERPES
     Dosage: 200 MG, QID
     Route: 048

REACTIONS (6)
  - ABDOMINAL PAIN [None]
  - DIARRHOEA [None]
  - DIZZINESS [None]
  - HAEMORRHAGE [None]
  - MALAISE [None]
  - VOMITING [None]
